FAERS Safety Report 8797526 (Version 2)
Quarter: 2012Q4

REPORT INFORMATION
  Report Type: 
  Country: US (occurrence: US)
  Receive Date: 20120920
  Receipt Date: 20121008
  Transmission Date: 20130627
  Serious: No
  Sender: FDA-Public Use
  Company Number: US-PFIZER INC-2012232397

PATIENT
  Age: 73 Year
  Sex: Male
  Weight: 83.9 kg

DRUGS (1)
  1. ATORVASTATIN CALCIUM [Suspect]
     Indication: BLOOD CHOLESTEROL INCREASED
     Dosage: UNK, daily
     Dates: start: 2012, end: 2012

REACTIONS (3)
  - Myalgia [Unknown]
  - Muscle spasms [Unknown]
  - Drug ineffective [Unknown]
